FAERS Safety Report 15805995 (Version 1)
Quarter: 2019Q1

REPORT INFORMATION
  Report Type: Spontaneous
  Country: US (occurrence: US)
  Receive Date: 20190110
  Receipt Date: 20190110
  Transmission Date: 20190417
  Serious: No
  Sender: FDA-Public Use
  Company Number: US-IPSEN BIOPHARMACEUTICALS, INC.-2019-00155

PATIENT
  Age: 70 Year
  Sex: Female

DRUGS (3)
  1. COLESTIPOL [Concomitant]
     Active Substance: COLESTIPOL
     Indication: DIARRHOEA
  2. DYSPORT [Suspect]
     Active Substance: ABOBOTULINUMTOXINA
     Indication: SKIN WRINKLING
     Dosage: DOSE NOT REPORTED.
     Dates: start: 201811, end: 201811
  3. EFFEXOR [Concomitant]
     Active Substance: VENLAFAXINE HYDROCHLORIDE
     Indication: DEPRESSION

REACTIONS (15)
  - Ocular hyperaemia [Not Recovered/Not Resolved]
  - Eye swelling [Not Recovered/Not Resolved]
  - Dysphonia [Unknown]
  - Dysstasia [Unknown]
  - Diarrhoea [Unknown]
  - Chest pain [Recovered/Resolved]
  - Gastrooesophageal reflux disease [Unknown]
  - Eye pain [Recovered/Resolved]
  - Eyelid ptosis [Not Recovered/Not Resolved]
  - Productive cough [Unknown]
  - Headache [Recovered/Resolved]
  - Gait disturbance [Unknown]
  - Chest discomfort [Recovered/Resolved]
  - Dry eye [Not Recovered/Not Resolved]
  - Hypoaesthesia [Unknown]

NARRATIVE: CASE EVENT DATE: 201811
